FAERS Safety Report 24640650 (Version 1)
Quarter: 2024Q4

REPORT INFORMATION
  Report Type: Report from Study
  Country: US (occurrence: US)
  Receive Date: 20241120
  Receipt Date: 20241120
  Transmission Date: 20250114
  Serious: Yes (Other)
  Sender: ABBVIE
  Company Number: US-ABBVIE-6008974

PATIENT
  Age: 54 Year
  Sex: Female
  Weight: 108 kg

DRUGS (3)
  1. SUCRALFATE [Suspect]
     Active Substance: SUCRALFATE
     Indication: Product used for unknown indication
     Route: 048
  2. CABOMETYX [Suspect]
     Active Substance: CABOZANTINIB S-MALATE
     Indication: Renal cancer
     Dosage: LAST ADMIN DATE 2024, STRENGTH 60 MG
     Route: 048
     Dates: start: 20240824
  3. CABOMETYX [Suspect]
     Active Substance: CABOZANTINIB S-MALATE
     Indication: Renal cancer
     Dosage: FIRST ADMIN DATE 2024, TOOK 60 MG OF 4 TABLETS A DAY FOR THREE DAYS.
     Route: 048
     Dates: end: 20240917

REACTIONS (13)
  - Rectal haemorrhage [Unknown]
  - Intracranial mass [Unknown]
  - Hypertension [Unknown]
  - Bone disorder [Unknown]
  - Malaise [Unknown]
  - Abdominal discomfort [Unknown]
  - Neck pain [Recovering/Resolving]
  - Anxiety [Unknown]
  - Chest pain [Recovering/Resolving]
  - Unevaluable event [Unknown]
  - Overdose [Unknown]
  - Intentional dose omission [Unknown]
  - Muscle disorder [Unknown]
